FAERS Safety Report 8247822-7 (Version None)
Quarter: 2012Q1

REPORT INFORMATION
  Report Type: 
  Country: None (occurrence: None)
  Receive Date: 20120330
  Receipt Date: 20120322
  Transmission Date: 20120608
  Serious: Yes (Hospitalization)
  Sender: FDA-Public Use
  Company Number: JP-PFIZER INC-2012070822

PATIENT
  Sex: Male

DRUGS (4)
  1. LIPITOR [Suspect]
     Dosage: UNK
     Route: 048
  2. LANSOPRAZOLE [Suspect]
     Dosage: UNK
  3. PLAVIX [Suspect]
     Dosage: UNK
  4. WARFARIN SODIUM [Suspect]
     Dosage: UNK

REACTIONS (1)
  - JAUNDICE [None]
